FAERS Safety Report 12154133 (Version 3)
Quarter: 2016Q3

REPORT INFORMATION
  Report Type: Report from Study
  Country: US (occurrence: US)
  Receive Date: 20160307
  Receipt Date: 20160823
  Transmission Date: 20161109
  Serious: Yes (Other)
  Sender: FDA-Public Use
  Company Number: US-AMGEN-USASL2016026486

PATIENT
  Age: 66 Year
  Sex: Male

DRUGS (1)
  1. ENBREL [Suspect]
     Active Substance: ETANERCEPT
     Indication: RHEUMATOID ARTHRITIS
     Dosage: 50 MG, QWK
     Route: 065
     Dates: start: 201001

REACTIONS (10)
  - Neuropathy peripheral [Unknown]
  - Deafness [Unknown]
  - Mobility decreased [Unknown]
  - Abasia [Unknown]
  - Malaise [Unknown]
  - Musculoskeletal pain [Unknown]
  - General physical condition abnormal [Unknown]
  - Off label use [Unknown]
  - Sinusitis [Unknown]
  - Arthralgia [Unknown]
